FAERS Safety Report 6973378-2 (Version None)
Quarter: 2010Q3

REPORT INFORMATION
  Report Type: 
  Country: None (occurrence: None)
  Receive Date: 20100907
  Receipt Date: 20100831
  Transmission Date: 20110219
  Serious: Yes (Hospitalization, Other)
  Sender: FDA-Public Use
  Company Number: 1000016050

PATIENT
  Age: 52 Year
  Sex: Female
  Weight: 62.6 kg

DRUGS (12)
  1. SAVELLE (MILNACIPRAN HYDROCHLORIDE) (TABLETS) [Suspect]
     Indication: FIBROMYALGIA
     Dosage: 100 MG (50 MG, 2 IN 1 D),ORAL
     Route: 048
  2. LYRICA [Suspect]
     Indication: FIBROMYALGIA
     Dosage: ORAL
     Route: 048
     Dates: start: 20090501
  3. LYRICA [Suspect]
     Indication: FIBROMYALGIA
     Dosage: 450 MG (225 MG, 2 IN 1 D),ORAL (AS REQUIRED), ORAL
     Route: 048
  4. ETODOLAC [Concomitant]
  5. SINGULAIR [Concomitant]
  6. HYDROCHLOROTHIAZIDE [Concomitant]
  7. COZAAR [Concomitant]
  8. LOSARTAN POTASSIUM [Concomitant]
  9. FLONASE [Concomitant]
  10. BENADRYL [Concomitant]
  11. CYCLOBENZAPRINE [Concomitant]
  12. AMOXICILLIN [Concomitant]

REACTIONS (5)
  - CONFUSIONAL STATE [None]
  - HEAD INJURY [None]
  - NEUROPATHY PERIPHERAL [None]
  - VISION BLURRED [None]
  - WEIGHT INCREASED [None]
